FAERS Safety Report 25414286 (Version 1)
Quarter: 2025Q2

REPORT INFORMATION
  Report Type: Spontaneous
  Country: US (occurrence: US)
  Receive Date: 20250609
  Receipt Date: 20250609
  Transmission Date: 20250717
  Serious: No
  Sender: SANOFI AVENTIS
  Company Number: US-SA-2025SA156293

PATIENT
  Age: 87 Year
  Sex: Female
  Weight: 70.45 kg

DRUGS (2)
  1. DUPIXENT [Suspect]
     Active Substance: DUPILUMAB
     Indication: Dermatitis atopic
     Route: 058
  2. ELIDEL [Concomitant]
     Active Substance: PIMECROLIMUS

REACTIONS (9)
  - Dry skin [Unknown]
  - Contusion [Unknown]
  - Therapeutic response shortened [Unknown]
  - Skin discolouration [Unknown]
  - Pruritus [Unknown]
  - Injection site pain [Unknown]
  - Device difficult to use [Unknown]
  - Lack of injection site rotation [Unknown]
  - Drug ineffective [Unknown]

NARRATIVE: CASE EVENT DATE: 20250502
